FAERS Safety Report 6873605-6 (Version None)
Quarter: 2010Q3

REPORT INFORMATION
  Report Type: 
  Country: None (occurrence: None)
  Receive Date: 20100723
  Receipt Date: 20090401
  Transmission Date: 20110219
  Serious: No
  Sender: FDA-Public Use
  Company Number: US-PFIZER INC-2009160284

PATIENT
  Sex: Female
  Weight: 49.887 kg

DRUGS (3)
  1. CHANTIX [Suspect]
     Indication: SMOKING CESSATION THERAPY
     Dosage: 1 MG, 2X/DAY
     Dates: start: 20080101
  2. SERTRALINE HYDROCHLORIDE [Concomitant]
     Dosage: 50 MG, 1X/DAY
  3. ALL OTHER THERAPEUTIC PRODUCTS [Concomitant]
     Indication: BACK DISORDER
     Dosage: UNK

REACTIONS (4)
  - ABNORMAL DREAMS [None]
  - INSOMNIA [None]
  - PSYCHIATRIC SYMPTOM [None]
  - THINKING ABNORMAL [None]
